FAERS Safety Report 13064581 (Version 3)
Quarter: 2017Q1

REPORT INFORMATION
  Report Type: Spontaneous
  Country: US (occurrence: US)
  Receive Date: 20161227
  Receipt Date: 20170302
  Transmission Date: 20170428
  Serious: No
  Sender: FDA-Public Use
  Company Number: US-009507513-1612USA012323

PATIENT
  Age: 37 Year
  Sex: Female
  Weight: 82.54 kg

DRUGS (1)
  1. NEXPLANON [Suspect]
     Active Substance: ETONOGESTREL
     Indication: CONTRACEPTION
     Dosage: 1 IMPLANT, ONCE, IN LEFT BICIPTAL GROOVE
     Route: 059
     Dates: start: 20160411, end: 20160725

REACTIONS (4)
  - Mood altered [Recovered/Resolved]
  - Migration of implanted drug [Recovered/Resolved]
  - Depression [Recovered/Resolved]
  - Device deployment issue [Recovered/Resolved]

NARRATIVE: CASE EVENT DATE: 20160411
